FAERS Safety Report 6422876-9 (Version None)
Quarter: 2009Q4

REPORT INFORMATION
  Report Type: 
  Country: None (occurrence: None)
  Receive Date: 20091102
  Receipt Date: 20091020
  Transmission Date: 20100525
  Serious: Yes (Life-Threatening, Hospitalization, Disabling)
  Sender: FDA-Public Use
  Company Number: GB-ROCHE-664005

PATIENT
  Age: 61 Year
  Sex: Male
  Weight: 91 kg

DRUGS (3)
  1. MYCOPHENOLATE MOFETIL [Suspect]
     Indication: ECZEMA
     Route: 048
     Dates: start: 20090331, end: 20090427
  2. ALITRETINOIN [Concomitant]
  3. CYCLOSPORINE [Concomitant]

REACTIONS (5)
  - ABASIA [None]
  - INTRASPINAL ABSCESS [None]
  - MUSCULAR WEAKNESS [None]
  - PAIN IN EXTREMITY [None]
  - STAPHYLOCOCCAL SEPSIS [None]
